FAERS Safety Report 6928279-2 (Version None)
Quarter: 2010Q3

REPORT INFORMATION
  Report Type: 
  Country: None (occurrence: None)
  Receive Date: 20100817
  Receipt Date: 20100807
  Transmission Date: 20110219
  Serious: Yes (Life-Threatening, Hospitalization, Other)
  Sender: FDA-Public Use
  Company Number: DE-ROCHE-720279

PATIENT
  Sex: Male
  Weight: 78 kg

DRUGS (3)
  1. PEGINTERFERON ALFA-2A [Suspect]
     Route: 058
     Dates: start: 20091223
  2. DOXICYCLIN [Suspect]
     Indication: PNEUMONIA
     Route: 065
     Dates: start: 20091201
  3. RIBAVIRIN [Concomitant]
     Route: 048
     Dates: start: 20091223

REACTIONS (2)
  - DECREASED IMMUNE RESPONSIVENESS [None]
  - PYOTHORAX [None]
